FAERS Safety Report 22090163 (Version 1)
Quarter: 2023Q1

REPORT INFORMATION
  Report Type: Spontaneous
  Country: US (occurrence: None)
  Receive Date: 20230313
  Receipt Date: 20230313
  Transmission Date: 20230418
  Serious: Yes (Other)
  Sender: FDA-Public Use
  Company Number: None

PATIENT
  Sex: Female

DRUGS (16)
  1. HUMIRA [Suspect]
     Active Substance: ADALIMUMAB
     Indication: Hidradenitis
     Dosage: OTHER FREQUENCY : EVERY 2 WEEKS;?
     Dates: start: 20210818
  2. Benzac [Concomitant]
  3. Polyeth Glycol [Concomitant]
  4. METFORMIN [Concomitant]
     Active Substance: METFORMIN HYDROCHLORIDE
  5. IBUPROFEN [Concomitant]
     Active Substance: IBUPROFEN
  6. NORVASC [Concomitant]
     Active Substance: AMLODIPINE BESYLATE
  7. ZOLOFT [Concomitant]
     Active Substance: SERTRALINE HYDROCHLORIDE
  8. WELLBUTRIN [Concomitant]
     Active Substance: BUPROPION HYDROCHLORIDE
  9. HYDROCHLOROTHIAZIDE [Concomitant]
     Active Substance: HYDROCHLOROTHIAZIDE
  10. MAGNESIUM [Concomitant]
     Active Substance: MAGNESIUM
  11. SPIRONOLACTONE [Concomitant]
     Active Substance: SPIRONOLACTONE
  12. LISINOPRIL [Concomitant]
     Active Substance: LISINOPRIL
  13. DOXYCYCLINE [Concomitant]
     Active Substance: DOXYCYCLINE
  14. ZINC [Concomitant]
     Active Substance: ZINC
  15. BENZOYL PEROXIDE [Concomitant]
     Active Substance: BENZOYL PEROXIDE
  16. CLINDAMYCIN [Concomitant]
     Active Substance: CLINDAMYCIN

REACTIONS (1)
  - Infection [None]
